FAERS Safety Report 21018458 (Version 1)
Quarter: 2022Q2

REPORT INFORMATION
  Report Type: Report from Study
  Country: IT (occurrence: IT)
  Receive Date: 20220628
  Receipt Date: 20220628
  Transmission Date: 20220721
  Serious: Yes (Other)
  Sender: FDA-Public Use
  Company Number: IT-UCBSA-2022035253

PATIENT
  Age: 81 Year
  Sex: Female

DRUGS (2)
  1. ROTIGOTINE [Suspect]
     Active Substance: ROTIGOTINE
     Indication: Antidepressant therapy
     Dosage: 4 MILLIGRAM, ONCE DAILY (QD)
     Route: 062
  2. CARBIDOPA\MELEVODOPA [Concomitant]
     Active Substance: CARBIDOPA\MELEVODOPA
     Indication: Product used for unknown indication

REACTIONS (8)
  - Hydrocephalus [Unknown]
  - Brain operation [Unknown]
  - Diabetes mellitus [Unknown]
  - Tremor [Unknown]
  - Aphasia [Unknown]
  - Gait disturbance [Unknown]
  - Product use in unapproved indication [Unknown]
  - Drug ineffective for unapproved indication [Unknown]

NARRATIVE: CASE EVENT DATE: 20170101
